FAERS Safety Report 22088570 (Version 1)
Quarter: 2023Q1

REPORT INFORMATION
  Report Type: Spontaneous
  Country: US (occurrence: US)
  Receive Date: 20230313
  Receipt Date: 20230313
  Transmission Date: 20230418
  Serious: Yes (Death, Other)
  Sender: FDA-Public Use
  Company Number: US-Hikma Pharmaceuticals USA Inc.-US-H14001-23-00660

PATIENT
  Age: 6 Decade
  Sex: Male

DRUGS (2)
  1. ABIRATERONE [Suspect]
     Active Substance: ABIRATERONE
     Indication: Androgen therapy
     Dosage: UNKNOWN
     Route: 065
  2. PREDNISONE [Suspect]
     Active Substance: PREDNISONE
     Indication: Androgen therapy
     Dosage: UNKNOWN
     Route: 065

REACTIONS (4)
  - Neuroendocrine carcinoma of prostate [Fatal]
  - Disease progression [Fatal]
  - Metastases to central nervous system [Fatal]
  - Paralysis [Fatal]
